FAERS Safety Report 23837411 (Version 1)
Quarter: 2024Q2

REPORT INFORMATION
  Report Type: Report from Study
  Country: US (occurrence: US)
  Receive Date: 20240509
  Receipt Date: 20240509
  Transmission Date: 20240716
  Serious: Yes (Death, Hospitalization, Other)
  Sender: FDA-Public Use
  Company Number: US-ACTELION-A-NJ2015-121943

PATIENT
  Age: 53 Year
  Sex: Male
  Weight: 87.75 kg

DRUGS (6)
  1. DOXYCYCLINE HYCLATE [Suspect]
     Active Substance: DOXYCYCLINE HYCLATE
     Dosage: UNK
  2. VELETRI [Suspect]
     Active Substance: EPOPROSTENOL
     Indication: Pulmonary arterial hypertension
     Dosage: UNK (24 NG/KG, PER MIN)
     Route: 042
  3. VELETRI [Suspect]
     Active Substance: EPOPROSTENOL
     Dosage: UNK (12 NG/KG, PER MIN)
     Route: 042
     Dates: start: 20150709
  4. VELETRI [Suspect]
     Active Substance: EPOPROSTENOL
     Dosage: UNK
     Route: 042
  5. VELETRI [Suspect]
     Active Substance: EPOPROSTENOL
     Dosage: UNK (8 NG/KG, PER MIN)
     Route: 042
     Dates: start: 20150709
  6. NUCYNTA [Suspect]
     Active Substance: TAPENTADOL HYDROCHLORIDE
     Dosage: UNK

REACTIONS (37)
  - Myalgia [Fatal]
  - Feeling abnormal [Fatal]
  - Memory impairment [Fatal]
  - Tachycardia [Fatal]
  - Rash [Fatal]
  - Vomiting [Fatal]
  - Skin graft [Fatal]
  - Skin ulcer [Fatal]
  - Disease recurrence [Fatal]
  - Nasal congestion [Fatal]
  - Tooth infection [Fatal]
  - Fall [Fatal]
  - Tooth fracture [Fatal]
  - Tremor [Fatal]
  - Limb injury [Fatal]
  - Fibromyalgia [Fatal]
  - Drug hypersensitivity [Fatal]
  - Dental care [Fatal]
  - Hallucination [Fatal]
  - Hypoxia [Fatal]
  - Pain in jaw [Fatal]
  - Foot fracture [Fatal]
  - Seasonal allergy [Fatal]
  - Nervousness [Fatal]
  - Pain [Fatal]
  - Limb discomfort [Fatal]
  - Depressed mood [Fatal]
  - Migraine [Fatal]
  - Nausea [Fatal]
  - Pain in extremity [Fatal]
  - Road traffic accident [Fatal]
  - Eye haemorrhage [Fatal]
  - Hypoaesthesia [Fatal]
  - Illness [Fatal]
  - Somnolence [Fatal]
  - Weight decreased [Fatal]
  - Seizure [Fatal]

NARRATIVE: CASE EVENT DATE: 20170601
